FAERS Safety Report 8538993-3 (Version None)
Quarter: 2012Q3

REPORT INFORMATION
  Report Type: 
  Country: None (occurrence: None)
  Receive Date: 20120726
  Receipt Date: 20120723
  Transmission Date: 20120928
  Serious: Yes (Other)
  Sender: FDA-Public Use
  Company Number: PHHY2012BR051869

PATIENT
  Sex: Female

DRUGS (2)
  1. VOLTAREN [Suspect]
     Indication: POSTOPERATIVE CARE
     Dosage: 1 DF, (50 MG EVERY 8 HOURS DURING 5 DAYS)
     Route: 048
  2. AMPICILLIN [Concomitant]
     Indication: POSTOPERATIVE CARE

REACTIONS (1)
  - BUCCAL MUCOSAL ROUGHENING [None]
